FAERS Safety Report 10034650 (Version 4)
Quarter: 2014Q2

REPORT INFORMATION
  Report Type: Report from Study
  Country: US (occurrence: US)
  Receive Date: 20140325
  Receipt Date: 20140502
  Transmission Date: 20141212
  Serious: Yes (Other)
  Sender: FDA-Public Use
  Company Number: US-PFIZER INC-2014075169

PATIENT
  Age: 54 Year
  Sex: Female
  Weight: 66.67 kg

DRUGS (15)
  1. TOFACITINIB CITRATE [Suspect]
     Indication: RHEUMATOID ARTHRITIS
     Dosage: 10 MG, 2X/DAY
     Route: 048
     Dates: start: 20120515, end: 20140123
  2. PLAQUENIL [Concomitant]
     Indication: RHEUMATOID ARTHRITIS
     Dosage: 200 MG, 1X/DAY
     Route: 048
     Dates: start: 20100114
  3. HYDROCODONE W/ACETAMINOPHEN [Concomitant]
     Indication: BACK PAIN
     Dosage: 12.5 MG, 3X/DAY
     Route: 048
     Dates: start: 2007
  4. CELEBREX [Concomitant]
     Indication: PAIN
     Dosage: UNK
     Dates: start: 2010
  5. FOLIC ACID [Concomitant]
     Indication: RHEUMATOID ARTHRITIS
     Dosage: 1 MG, 1X/DAY
     Route: 048
     Dates: start: 20100830
  6. GABAPENTIN [Concomitant]
     Indication: MIGRAINE
     Dosage: UNK
     Dates: start: 20110708
  7. FISH OIL [Concomitant]
     Indication: SUPPLEMENTATION THERAPY
     Dosage: UNK
     Dates: start: 20120423
  8. VOLTAREN [Concomitant]
     Indication: RHEUMATOID ARTHRITIS
     Dosage: UNK
     Dates: start: 201203
  9. CYMBALTA [Concomitant]
     Indication: ANXIETY
     Dosage: UNK
     Dates: start: 20130115
  10. CLONAZEPAM [Concomitant]
     Indication: ANXIETY
     Dosage: UNK
     Dates: start: 20130115
  11. METHOTREXATE [Concomitant]
     Indication: RHEUMATOID ARTHRITIS
     Dosage: 12.5 MG, QW
     Route: 048
     Dates: start: 20100830, end: 20140123
  12. DOCUSATE SODIUM [Concomitant]
     Indication: LAXATIVE SUPPORTIVE CARE
     Dosage: UNK
     Dates: start: 2008
  13. MIRALAX [Concomitant]
     Indication: LAXATIVE SUPPORTIVE CARE
     Dosage: UNK
     Dates: start: 2008
  14. BISACODYL [Concomitant]
     Indication: LAXATIVE SUPPORTIVE CARE
     Dosage: UNK
     Dates: start: 2008
  15. MULTIVITAMINS [Concomitant]
     Indication: SUPPLEMENTATION THERAPY
     Dosage: UNK
     Dates: start: 20110708

REACTIONS (1)
  - Tooth abscess [Recovered/Resolved]
